FAERS Safety Report 9451468 (Version 3)
Quarter: 2013Q3

REPORT INFORMATION
  Report Type: Spontaneous
  Country: US (occurrence: US)
  Receive Date: 20130810
  Receipt Date: 20130904
  Transmission Date: 20140515
  Serious: Yes (Other)
  Sender: FDA-Public Use
  Company Number: US-JNJFOC-20130717218

PATIENT
  Age: 88 Year
  Sex: Female
  Weight: 68.04 kg

DRUGS (5)
  1. TYLENOL SINUS [Suspect]
     Indication: HEADACHE
     Route: 048
     Dates: start: 20130725, end: 20130726
  2. LORAZEPAM [Concomitant]
     Indication: PRODUCT USED FOR UNKNOWN INDICATION
     Dosage: DOSE:1 PILL AS NEEDED
     Route: 065
  3. ASPIRIN [Concomitant]
     Indication: PRODUCT USED FOR UNKNOWN INDICATION
     Dosage: DOSE: 1 PILL
     Route: 065
  4. PLAVIX [Concomitant]
     Indication: PRODUCT USED FOR UNKNOWN INDICATION
     Route: 065
  5. NEURONTIN [Concomitant]
     Indication: SENSORY DISTURBANCE
     Route: 065

REACTIONS (2)
  - Blood pressure increased [Unknown]
  - Headache [Recovering/Resolving]
